FAERS Safety Report 15692681 (Version 2)
Quarter: 2019Q1

REPORT INFORMATION
  Report Type: Spontaneous
  Country: US (occurrence: US)
  Receive Date: 20181206
  Receipt Date: 20190116
  Transmission Date: 20190417
  Serious: No
  Sender: FDA-Public Use
  Company Number: US-ASTRAZENECA-2018SF51933

PATIENT
  Sex: Female
  Weight: 99.8 kg

DRUGS (3)
  1. ALLEGRA [Concomitant]
     Active Substance: FEXOFENADINE HYDROCHLORIDE
     Dosage: 180.0MG AS REQUIRED
     Route: 048
  2. SYMBICORT [Suspect]
     Active Substance: BUDESONIDE\FORMOTEROL FUMARATE DIHYDRATE
     Indication: ASTHMA
     Dosage: 160/4.5 MCG, 1 PUFF AT NIGHT
     Route: 055
  3. SINGULAIR [Concomitant]
     Active Substance: MONTELUKAST SODIUM
     Indication: INHALATION THERAPY
     Route: 048

REACTIONS (8)
  - Cardiac disorder [Unknown]
  - Glaucoma [Unknown]
  - Hypersensitivity [Unknown]
  - Dyspnoea [Unknown]
  - Memory impairment [Unknown]
  - Body height decreased [Unknown]
  - Visual impairment [Not Recovered/Not Resolved]
  - Off label use [Unknown]
